FAERS Safety Report 6786419-2 (Version None)
Quarter: 2010Q2

REPORT INFORMATION
  Report Type: 
  Country: None (occurrence: None)
  Receive Date: 20100623
  Receipt Date: 20100614
  Transmission Date: 20101027
  Serious: Yes (Other)
  Sender: FDA-Public Use
  Company Number: A0865029A

PATIENT
  Sex: Male

DRUGS (4)
  1. ADVAIR DISKUS 100/50 [Suspect]
     Route: 065
     Dates: start: 20100501
  2. VENTOLIN [Suspect]
     Route: 055
  3. VENTOLIN [Concomitant]
  4. MULTI-VITAMIN [Concomitant]

REACTIONS (4)
  - ANGER [None]
  - ASTHMA [None]
  - DRUG INEFFECTIVE [None]
  - NERVOUSNESS [None]
